FAERS Safety Report 15916843 (Version 1)
Quarter: 2019Q1

REPORT INFORMATION
  Report Type: Spontaneous
  Country: TW (occurrence: TW)
  Receive Date: 20190205
  Receipt Date: 20190205
  Transmission Date: 20190417
  Serious: Yes (Hospitalization, Other)
  Sender: FDA-Public Use
  Company Number: TW-BRISTOL-MYERS SQUIBB COMPANY-BMS-2017-033771

PATIENT
  Age: 41 Year
  Sex: Male
  Weight: 90 kg

DRUGS (10)
  1. TAPIMYCIN [Concomitant]
     Indication: LUNG INFECTION
     Dosage: 4.5 G, Q6H
     Route: 065
     Dates: start: 20170413
  2. MORPHINE [Concomitant]
     Active Substance: MORPHINE
     Indication: PAIN
     Dosage: 30 MG, BID
     Route: 048
     Dates: start: 20170412
  3. GEMZAR [Concomitant]
     Active Substance: GEMCITABINE HYDROCHLORIDE
     Indication: PRODUCT USED FOR UNKNOWN INDICATION
     Dosage: 2800 MG, Q2WK
     Route: 065
     Dates: start: 20180717
  4. OPDIVO [Suspect]
     Active Substance: NIVOLUMAB
     Indication: NON-SMALL CELL LUNG CANCER
     Dosage: 3 MG/KG, Q2WK
     Route: 042
     Dates: start: 20170410
  5. TAXOTERE [Suspect]
     Active Substance: DOCETAXEL
     Indication: NON-SMALL CELL LUNG CANCER
     Dosage: 80 MG, UNK
     Route: 042
     Dates: start: 20170410
  6. TAZOCIN [Concomitant]
     Active Substance: PIPERACILLIN SODIUM\TAZOBACTAM SODIUM
     Indication: LUNG INFECTION
     Dosage: 2.25 MG, Q8H
     Route: 042
     Dates: start: 20170412, end: 20170413
  7. GABAPENTIN. [Concomitant]
     Active Substance: GABAPENTIN
     Indication: PAIN
     Dosage: 1 DF, TID
     Route: 048
     Dates: start: 20170412
  8. ACETYLCYSTEINE. [Concomitant]
     Active Substance: ACETYLCYSTEINE
     Indication: COUGH
     Dosage: 1 DF, BID
     Route: 048
     Dates: start: 20170412
  9. BISACODYL. [Concomitant]
     Active Substance: BISACODYL
     Indication: CONSTIPATION
     Dosage: 5 MG, UNK
     Route: 048
     Dates: start: 20170412
  10. MEGEST                             /00082602/ [Concomitant]
     Indication: DECREASED APPETITE
     Dosage: 10 UNK, QD
     Route: 048
     Dates: start: 20170415

REACTIONS (4)
  - Off label use [Unknown]
  - Pneumonia [Unknown]
  - Pyrexia [Recovered/Resolved]
  - Rash [Unknown]

NARRATIVE: CASE EVENT DATE: 20170414
